FAERS Safety Report 17569365 (Version 2)
Quarter: 2020Q1

REPORT INFORMATION
  Report Type: Spontaneous
  Country: MX (occurrence: MX)
  Receive Date: 20200322
  Receipt Date: 20200331
  Transmission Date: 20200409
  Serious: Yes (Other)
  Sender: FDA-Public Use
  Company Number: MX-GLENMARK PHARMACEUTICALS-2020GMK046606

PATIENT
  Age: 58 Year
  Sex: Male
  Weight: 63 kg

DRUGS (4)
  1. TACROLIMUS. [Suspect]
     Active Substance: TACROLIMUS
     Indication: IMMUNOSUPPRESSANT DRUG THERAPY
     Dosage: 3 MILLIGRAM, BID (3 MG EVERY 12 HOURS) (AT SERUM LEVELS OF 7 NG/ML)
     Route: 048
     Dates: start: 201205
  2. PREDNISONE. [Suspect]
     Active Substance: PREDNISONE
     Indication: IMMUNOSUPPRESSANT DRUG THERAPY
     Dosage: 5 MILLIGRAM, OD (5 MG EVERY 24 HOURS)
     Route: 048
     Dates: start: 201205
  3. MYCOPHENOLATE MOFETIL. [Suspect]
     Active Substance: MYCOPHENOLATE MOFETIL
     Indication: IMMUNOSUPPRESSANT DRUG THERAPY
     Dosage: 500 MILLIGRAM, BID (EVERY 12 HOURS FOR THREE YEARS)
     Route: 065
     Dates: start: 201205, end: 2015
  4. SIROLIMUS. [Suspect]
     Active Substance: SIROLIMUS
     Indication: IMMUNOSUPPRESSANT DRUG THERAPY
     Dosage: 2 MILLIGRAM, OD (EVERY 24 HOURS) (SERUM LEVELS: 7 NG/ML)
     Route: 048
     Dates: start: 2015

REACTIONS (3)
  - Hypertension [Recovering/Resolving]
  - Hypertriglyceridaemia [Recovering/Resolving]
  - Peripheral artery stenosis [Recovered/Resolved]

NARRATIVE: CASE EVENT DATE: 2014
